FAERS Safety Report 24675360 (Version 1)
Quarter: 2024Q4

REPORT INFORMATION
  Report Type: Spontaneous
  Country: BG (occurrence: BG)
  Receive Date: 20241128
  Receipt Date: 20241128
  Transmission Date: 20250114
  Serious: Yes (Other)
  Sender: COSETTE PHARMACEUTICALS INC
  Company Number: BG-COSETTE-CP2024BG000368

PATIENT
  Age: 77 Year
  Sex: Male

DRUGS (3)
  1. BENICAR HCT [Suspect]
     Active Substance: HYDROCHLOROTHIAZIDE\OLMESARTAN MEDOXOMIL
     Indication: Hypertension
     Dosage: 20/12.5 MG ID
     Route: 065
     Dates: start: 2018
  2. HYDROCHLOROTHIAZIDE\IRBESARTAN [Suspect]
     Active Substance: HYDROCHLOROTHIAZIDE\IRBESARTAN
     Indication: Hypertension
     Dosage: 150/12.5 MG ID
     Route: 065
     Dates: start: 2019
  3. HYDROCHLOROTHIAZIDE\TELMISARTAN [Suspect]
     Active Substance: HYDROCHLOROTHIAZIDE\TELMISARTAN
     Indication: Hypertension
     Dosage: 80/12.5 MG
     Route: 065

REACTIONS (3)
  - Lentigo maligna [Recovering/Resolving]
  - Dysplastic naevus [Recovering/Resolving]
  - Suspected product contamination [Unknown]
